FAERS Safety Report 5642782-7 (Version None)
Quarter: 2008Q1

REPORT INFORMATION
  Report Type: 
  Country: None (occurrence: None)
  Receive Date: 20080227
  Receipt Date: 20080227
  Transmission Date: 20080703
  Serious: Yes (Death)
  Sender: FDA-Public Use
  Company Number: None

PATIENT
  Age: 69 Year
  Sex: Male

DRUGS (2)
  1. DOCETAXEL [Suspect]
     Indication: GASTRIC CANCER STAGE IV
     Dosage: 80MG OTHER IV
     Route: 042
     Dates: start: 20080118, end: 20080118
  2. CISPLATIN [Suspect]
     Indication: GASTRIC CANCER STAGE IV
     Dosage: 90MG OTHER IV
     Route: 042
     Dates: start: 20080118, end: 20080118

REACTIONS (5)
  - BACK PAIN [None]
  - CARDIO-RESPIRATORY ARREST [None]
  - DEHYDRATION [None]
  - ORAL INTAKE REDUCED [None]
  - PULMONARY EMBOLISM [None]
